FAERS Safety Report 21575987 (Version 1)
Quarter: 2022Q4

REPORT INFORMATION
  Report Type: Spontaneous
  Country: IT (occurrence: IT)
  Receive Date: 20221110
  Receipt Date: 20221110
  Transmission Date: 20230113
  Serious: Yes (Other)
  Sender: FDA-Public Use
  Company Number: IT-ASPEN-GLO2022IT006474

PATIENT
  Age: 65 Year
  Sex: Male

DRUGS (10)
  1. CYTARABINE [Suspect]
     Active Substance: CYTARABINE
     Indication: Stem cell transplant
     Dosage: 400 MG/M2, 1X/DAY (QD DAYS ?5 TO ?2)
  2. CYTARABINE [Suspect]
     Active Substance: CYTARABINE
     Indication: Bone marrow conditioning regimen
  3. CYTARABINE [Suspect]
     Active Substance: CYTARABINE
     Indication: Diffuse large B-cell lymphoma stage IV
  4. ETOPOSIDE [Suspect]
     Active Substance: ETOPOSIDE
     Indication: Diffuse large B-cell lymphoma stage IV
     Dosage: 200 MG/M2, 1X/DAY (QD DAYS ?5 TO ?2)
  5. ETOPOSIDE [Suspect]
     Active Substance: ETOPOSIDE
     Indication: Stem cell transplant
  6. ETOPOSIDE [Suspect]
     Active Substance: ETOPOSIDE
     Indication: Bone marrow conditioning regimen
  7. MELPHALAN [Suspect]
     Active Substance: MELPHALAN
     Dosage: 140 MG/M2 (FREQ:TOTAL;140 MG/M2, 1 DOSAGE TOTAL)
  8. FOTEMUSTINE [Suspect]
     Active Substance: FOTEMUSTINE
     Indication: Stem cell transplant
     Dosage: 150 MG/M2, 1X/DAY (QD DAYS -7 AND -6)
  9. FOTEMUSTINE [Suspect]
     Active Substance: FOTEMUSTINE
     Indication: Bone marrow conditioning regimen
  10. FOTEMUSTINE [Suspect]
     Active Substance: FOTEMUSTINE
     Indication: Diffuse large B-cell lymphoma stage IV

REACTIONS (2)
  - Cytopenia [Recovered/Resolved]
  - Infection [Unknown]
